FAERS Safety Report 17129248 (Version 2)
Quarter: 2020Q1

REPORT INFORMATION
  Report Type: Spontaneous
  Country: JP (occurrence: JP)
  Receive Date: 20191209
  Receipt Date: 20200220
  Transmission Date: 20200409
  Serious: Yes (Hospitalization, Other)
  Sender: FDA-Public Use
  Company Number: JP-BRISTOL-MYERS SQUIBB COMPANY-BMS-2019-013773

PATIENT
  Age: 78 Year
  Sex: Male
  Weight: 57 kg

DRUGS (12)
  1. FEBURIC [Concomitant]
     Active Substance: FEBUXOSTAT
     Indication: HYPERURICAEMIA
     Dosage: 10 MILLIGRAM, EVERYDAY
     Route: 065
     Dates: start: 20171207
  2. OPDIVO [Suspect]
     Active Substance: NIVOLUMAB
     Indication: PRODUCT USED FOR UNKNOWN INDICATION
     Dosage: 180 UNK
     Route: 041
     Dates: start: 20171219, end: 20180918
  3. OPDIVO [Suspect]
     Active Substance: NIVOLUMAB
     Indication: METASTATIC RENAL CELL CARCINOMA
     Dosage: 175 MILLIGRAM
     Route: 041
     Dates: start: 20171205, end: 20171205
  4. VOTRIENT [Concomitant]
     Active Substance: PAZOPANIB HYDROCHLORIDE
     Indication: PRODUCT USED FOR UNKNOWN INDICATION
     Dosage: 800 MILLIGRAM, EVERYDAY
     Route: 065
     Dates: start: 20190314
  5. BAYASPIRIN [Concomitant]
     Active Substance: ASPIRIN
     Indication: PRODUCT USED FOR UNKNOWN INDICATION
     Dosage: 100 MILLIGRAM, EVERYDAY
     Route: 065
     Dates: start: 20190213
  6. OLMESARTAN [Concomitant]
     Active Substance: OLMESARTAN
     Indication: HYPERTENSION
     Dosage: 20 MILLIGRAM, EVERYDAY
     Route: 048
     Dates: start: 20180501
  7. BROTIZOLAM [Suspect]
     Active Substance: BROTIZOLAM
     Indication: INSOMNIA
     Dosage: 0.25 MILLIGRAM, PRN
     Route: 048
     Dates: start: 20190217
  8. BAYASPIRIN [Concomitant]
     Active Substance: ASPIRIN
     Indication: THROMBOSIS PROPHYLAXIS
     Dosage: 100 MILLIGRAM, EVERYDAY
     Route: 065
     Dates: start: 20171207, end: 20190206
  9. ZALUTIA [Concomitant]
     Active Substance: TADALAFIL
     Indication: DYSURIA
     Dosage: 5 MILLIGRAM, EVERYDAY
     Route: 048
     Dates: start: 20160107
  10. PAZOPANIB HYDROCHLORIDE [Concomitant]
     Active Substance: PAZOPANIB HYDROCHLORIDE
     Indication: PRODUCT USED FOR UNKNOWN INDICATION
     Dosage: UNK
     Route: 065
  11. FERROUS CITRATE [Concomitant]
     Active Substance: FERROUS CITRATE
     Indication: PRODUCT USED FOR UNKNOWN INDICATION
     Route: 065
  12. VOTRIENT [Concomitant]
     Active Substance: PAZOPANIB HYDROCHLORIDE
     Indication: METASTATIC RENAL CELL CARCINOMA
     Dosage: 800 MILLIGRAM, EVERYDAY
     Route: 065
     Dates: start: 20180925, end: 20190206

REACTIONS (12)
  - Constipation [Unknown]
  - Iron deficiency anaemia [Not Recovered/Not Resolved]
  - Insomnia [Not Recovered/Not Resolved]
  - Arthralgia [Not Recovered/Not Resolved]
  - Dysuria [Unknown]
  - Osteoporosis [Unknown]
  - Pain [Unknown]
  - Interstitial lung disease [Recovered/Resolved]
  - Bladder cancer [Not Recovered/Not Resolved]
  - Malignant neoplasm progression [Unknown]
  - Haemorrhage [Unknown]
  - Hypersomnia [Unknown]

NARRATIVE: CASE EVENT DATE: 20171207
